FAERS Safety Report 7460706-7 (Version None)
Quarter: 2011Q2

REPORT INFORMATION
  Report Type: 
  Country: None (occurrence: None)
  Receive Date: 20110505
  Receipt Date: 20110429
  Transmission Date: 20111010
  Serious: Yes (Hospitalization)
  Sender: FDA-Public Use
  Company Number: CH-US-EMD SERONO, INC.-7039289

PATIENT
  Sex: Male

DRUGS (8)
  1. REBIF [Suspect]
     Indication: MULTIPLE SCLEROSIS
     Route: 058
     Dates: start: 20071106, end: 20090701
  2. REBIF [Suspect]
     Route: 058
     Dates: start: 20100101, end: 20100801
  3. BD DRUGS [Concomitant]
     Indication: HYPERTENSION
     Route: 048
  4. REBIF [Suspect]
     Route: 058
     Dates: start: 20100101, end: 20100101
  5. REBIF [Suspect]
     Route: 058
     Dates: start: 20090701, end: 20100701
  6. REBIF [Suspect]
     Dosage: TITRATION
     Route: 058
     Dates: start: 20101101, end: 20101130
  7. REBIF [Suspect]
     Dosage: TITRATION
     Route: 058
     Dates: start: 20100901, end: 20101101
  8. BD DRUGS [Concomitant]
     Indication: RENAL FAILURE

REACTIONS (6)
  - DISBACTERIOSIS [None]
  - SINUSITIS [None]
  - DIVERTICULITIS [None]
  - RESPIRATORY DISORDER [None]
  - MULTIPLE SCLEROSIS [None]
  - TREATMENT NONCOMPLIANCE [None]
